FAERS Safety Report 10047164 (Version 2)
Quarter: 2014Q1

REPORT INFORMATION
  Report Type: Spontaneous
  Country: US (occurrence: US)
  Receive Date: 20140331
  Receipt Date: 20140331
  Transmission Date: 20141002
  Serious: No
  Sender: FDA-Public Use
  Company Number: US-MYLANLABS-2013S1014422

PATIENT
  Sex: Female

DRUGS (2)
  1. FENTANYL TRANSDERMAL SYSTEM [Suspect]
     Indication: PAIN
     Dosage: CHANGE PATCH EVERY 72 HOURS.
     Route: 062
     Dates: start: 201208
  2. FENTANYL TRANSDERMAL SYSTEM [Suspect]
     Indication: MYELITIS TRANSVERSE
     Dosage: CHANGE PATCH EVERY 72 HOURS.
     Route: 062
     Dates: start: 201208

REACTIONS (2)
  - Incorrect drug administration duration [Recovered/Resolved]
  - Pain [Recovered/Resolved]
